FAERS Safety Report 8839046 (Version 1)
Quarter: 2012Q4

REPORT INFORMATION
  Report Type: Spontaneous
  Country: US (occurrence: None)
  Receive Date: 20121011
  Receipt Date: 20121011
  Transmission Date: 20130627
  Serious: No
  Sender: FDA-Public Use
  Company Number: None

PATIENT
  Sex: Female

DRUGS (1)
  1. SPIRIVA [Suspect]
     Indication: COPD
     Dosage: 4-5 months

REACTIONS (3)
  - Sneezing [None]
  - Rhinorrhoea [None]
  - Drug effect decreased [None]
